FAERS Safety Report 14949283 (Version 1)
Quarter: 2018Q2

REPORT INFORMATION
  Report Type: Spontaneous
  Country: DE (occurrence: DE)
  Receive Date: 20180529
  Receipt Date: 20180529
  Transmission Date: 20180711
  Serious: Yes (Other)
  Sender: FDA-Public Use
  Company Number: DE-MYLANLABS-2018M1033999

PATIENT
  Age: 53 Year
  Sex: Female
  Weight: 60 kg

DRUGS (12)
  1. BEVACIZUMAB. [Suspect]
     Active Substance: BEVACIZUMAB
     Dosage: 900 MG, UNK
     Route: 042
     Dates: start: 20140626, end: 20140626
  2. MIRTAZAPINE. [Concomitant]
     Active Substance: MIRTAZAPINE
     Indication: BILE DUCT STENOSIS
     Dosage: 7.5 MG, QD
     Route: 048
     Dates: start: 20150725
  3. OXYGESIC AKUT [Concomitant]
     Active Substance: OXYCODONE
     Indication: BILE DUCT STENOSIS
     Dosage: 5 MG, UNK
     Route: 048
  4. AVALOX [Concomitant]
     Active Substance: MOXIFLOXACIN HYDROCHLORIDE
     Indication: INFLUENZA LIKE ILLNESS
     Dosage: 400 MG, QD
     Route: 048
     Dates: start: 20130925, end: 20131001
  5. CAPECITABINE. [Suspect]
     Active Substance: CAPECITABINE
     Indication: PRODUCT USED FOR UNKNOWN INDICATION
     Dosage: 2000 MG, QD
     Route: 048
     Dates: start: 20140324, end: 20140710
  6. ZOLPIDEM [Concomitant]
     Active Substance: ZOLPIDEM\ZOLPIDEM TARTRATE
     Indication: BILE DUCT STENOSIS
     Dosage: 10 MG, QD
     Route: 048
     Dates: start: 20150725
  7. ONDANSETRON [Concomitant]
     Active Substance: ONDANSETRON
     Indication: BILE DUCT STENOSIS
     Dosage: 4 MG, UNK
     Route: 042
  8. CAPECITABINE. [Suspect]
     Active Substance: CAPECITABINE
     Indication: BREAST CANCER
     Dosage: 3000 MG, QD
     Route: 048
     Dates: start: 20130715, end: 20140317
  9. CANDESARTAN. [Concomitant]
     Active Substance: CANDESARTAN
     Indication: PRODUCT USED FOR UNKNOWN INDICATION
     Dosage: 4 MG, QD
     Route: 048
     Dates: start: 20140609
  10. PANTOPRAZOL                        /01263201/ [Concomitant]
     Active Substance: PANTOPRAZOLE
     Indication: BILE DUCT STENOSIS
     Dosage: 40 MG, QD
     Route: 048
     Dates: start: 20150725
  11. BEVACIZUMAB. [Suspect]
     Active Substance: BEVACIZUMAB
     Indication: BREAST CANCER
     Dosage: 900 MG, Q3W
     Route: 042
     Dates: start: 20130715, end: 20130715
  12. CEFUROXIM                          /00454601/ [Concomitant]
     Active Substance: CEFUROXIME
     Indication: INFLUENZA LIKE ILLNESS
     Dosage: 1000 MG, QD
     Route: 048
     Dates: start: 20140409, end: 20140414

REACTIONS (5)
  - Left ventricular dysfunction [Recovering/Resolving]
  - Ascites [Unknown]
  - Influenza [Recovered/Resolved]
  - Pneumonia [Recovered/Resolved]
  - Tonsillitis [Recovered/Resolved]

NARRATIVE: CASE EVENT DATE: 20130925
